FAERS Safety Report 23036808 (Version 3)
Quarter: 2023Q4

REPORT INFORMATION
  Report Type: Report from Study
  Country: HR (occurrence: HR)
  Receive Date: 20231006
  Receipt Date: 20231105
  Transmission Date: 20240110
  Serious: Yes (Other)
  Sender: FDA-Public Use
  Company Number: HR-002147023-NVSC2023HR212207

PATIENT
  Sex: Female

DRUGS (4)
  1. COSENTYX [Suspect]
     Active Substance: SECUKINUMAB
     Indication: Axial spondyloarthritis
     Dosage: 150 MG, (FREQUENCY 1X)
     Route: 058
     Dates: start: 201803, end: 20230909
  2. EUTHYROX [Concomitant]
     Active Substance: LEVOTHYROXINE SODIUM
     Indication: Product used for unknown indication
     Dosage: 100 MG (FOR 5 DAYS)
     Route: 065
     Dates: start: 20081230
  3. EUTHYROX [Concomitant]
     Active Substance: LEVOTHYROXINE SODIUM
     Dosage: 125 MG (ON SATURDAY AND SUNDAY)
     Route: 065
  4. AMLODIPINE BESYLATE\PERINDOPRIL ERBUMINE [Concomitant]
     Active Substance: AMLODIPINE BESYLATE\PERINDOPRIL ERBUMINE
     Indication: Product used for unknown indication
     Dosage: AMLODIPINE BESILATE 5 MG, PERINDOPRIL ERBUMINE 4 MG (STRENGTH: DALNEVA 4/5 UNITS NOT SPECIFIED)
     Route: 065
     Dates: start: 20190606

REACTIONS (2)
  - Upper limb fracture [Recovering/Resolving]
  - Fall [Recovering/Resolving]

NARRATIVE: CASE EVENT DATE: 20230923
